FAERS Safety Report 18064075 (Version 1)
Quarter: 2020Q3

REPORT INFORMATION
  Report Type: Spontaneous
  Country: RO (occurrence: RO)
  Receive Date: 20200724
  Receipt Date: 20200724
  Transmission Date: 20201103
  Serious: Yes (Other)
  Sender: FDA-Public Use
  Company Number: RO-ABBVIE-20K-135-3496461-00

PATIENT
  Age: 62 Year
  Sex: Female
  Weight: 80 kg

DRUGS (3)
  1. HUMIRA [Suspect]
     Active Substance: ADALIMUMAB
     Indication: RHEUMATOID ARTHRITIS
     Route: 058
     Dates: start: 201910, end: 202007
  2. DICLOFENAC [Concomitant]
     Active Substance: DICLOFENAC
     Indication: RHEUMATOID ARTHRITIS
     Dosage: 100 AS NEEDED.
     Route: 048
     Dates: start: 20020616
  3. METHOTREXATE. [Concomitant]
     Active Substance: METHOTREXATE
     Indication: RHEUMATOID ARTHRITIS
     Route: 048
     Dates: start: 20040616

REACTIONS (7)
  - C-reactive protein increased [Recovering/Resolving]
  - Anti-cyclic citrullinated peptide antibody positive [Recovering/Resolving]
  - Double stranded DNA antibody positive [Recovering/Resolving]
  - Inflammatory marker increased [Unknown]
  - Red blood cell sedimentation rate increased [Recovering/Resolving]
  - Acute phase reaction [Unknown]
  - Systemic lupus erythematosus [Recovering/Resolving]

NARRATIVE: CASE EVENT DATE: 20200723
